FAERS Safety Report 7443626-3 (Version None)
Quarter: 2011Q2

REPORT INFORMATION
  Report Type: 
  Country: None (occurrence: None)
  Receive Date: 20110428
  Receipt Date: 20110421
  Transmission Date: 20111010
  Serious: Yes (Hospitalization)
  Sender: FDA-Public Use
  Company Number: HU-ROCHE-766264

PATIENT
  Sex: Female
  Weight: 66 kg

DRUGS (2)
  1. ROACTEMRA [Suspect]
     Dosage: THERAPY RE-INTRODUCED.
     Route: 042
  2. ROACTEMRA [Suspect]
     Route: 042
     Dates: start: 20100127

REACTIONS (2)
  - DUODENITIS [None]
  - THROMBOCYTOPENIA [None]
